FAERS Safety Report 9684363 (Version 1)
Quarter: 2013Q4

REPORT INFORMATION
  Report Type: Spontaneous
  Country: FR (occurrence: FR)
  Receive Date: 20131112
  Receipt Date: 20131112
  Transmission Date: 20140711
  Serious: Yes (Hospitalization)
  Sender: FDA-Public Use
  Company Number: FR-ALLERGAN-1317560US

PATIENT
  Age: 71 Year
  Sex: Male

DRUGS (13)
  1. GANFORT [Suspect]
     Indication: GLAUCOMA
     Dosage: 1 DROP DAILY
     Route: 047
  2. COMBIGAN [Suspect]
     Indication: GLAUCOMA
     Dosage: 1 DROP DAILY
     Route: 047
  3. SECTRAL [Suspect]
     Indication: PRODUCT USED FOR UNKNOWN INDICATION
     Dosage: UNK
     Dates: end: 201303
  4. KIVEXA [Concomitant]
     Dosage: UNK
  5. COMBIVIR [Concomitant]
     Dosage: UNK
  6. VIRAMUNE [Concomitant]
     Dosage: UNK
     Dates: start: 2006
  7. AMLOR [Concomitant]
     Dosage: UNK
     Dates: start: 2006
  8. PLAVIX [Concomitant]
     Dosage: UNK
     Dates: start: 2006
  9. ZESTORETIC [Concomitant]
     Dosage: UNK
     Dates: start: 201204
  10. ZESTRIL [Concomitant]
     Dosage: UNK
  11. TAHOR [Concomitant]
     Dosage: UNK
     Dates: start: 201204
  12. NOVONORM [Concomitant]
     Dosage: UNK
  13. METFORMIN [Concomitant]
     Dosage: UNK
     Dates: start: 201211

REACTIONS (1)
  - Extremity necrosis [Recovered/Resolved]
